FAERS Safety Report 12597087 (Version 1)
Quarter: 2016Q3

REPORT INFORMATION
  Report Type: Spontaneous
  Country: US (occurrence: None)
  Receive Date: 20160726
  Receipt Date: 20160726
  Transmission Date: 20161109
  Serious: No
  Sender: FDA-Public Use
  Company Number: None

PATIENT
  Age: 61 Year
  Sex: Female

DRUGS (1)
  1. HUMIRA [Suspect]
     Active Substance: ADALIMUMAB
     Indication: RHEUMATOID ARTHRITIS
     Route: 058
     Dates: start: 20160614, end: 20160628

REACTIONS (13)
  - Fatigue [None]
  - Nausea [None]
  - Joint warmth [None]
  - Ear pain [None]
  - Headache [None]
  - Rhinorrhoea [None]
  - Neck pain [None]
  - Malaise [None]
  - Urinary incontinence [None]
  - Back pain [None]
  - Retching [None]
  - Pain in jaw [None]
  - Oropharyngeal pain [None]

NARRATIVE: CASE EVENT DATE: 20160614
